FAERS Safety Report 6847846-8 (Version None)
Quarter: 2010Q3

REPORT INFORMATION
  Report Type: 
  Country: None (occurrence: None)
  Receive Date: 20100716
  Receipt Date: 20100705
  Transmission Date: 20110219
  Serious: Yes (Other)
  Sender: FDA-Public Use
  Company Number: FR-BRISTOL-MYERS SQUIBB COMPANY-15188238

PATIENT
  Sex: Male

DRUGS (6)
  1. GLUCOPHAGE [Suspect]
     Indication: TYPE 2 DIABETES MELLITUS
     Route: 048
  2. GLUCOR [Suspect]
     Indication: TYPE 2 DIABETES MELLITUS
     Dosage: GLUCOR 50MG
  3. NOVONORM [Suspect]
     Indication: TYPE 2 DIABETES MELLITUS
     Dosage: NOVONORM 1MG
  4. TERCIAN [Concomitant]
  5. URBANYL [Concomitant]
  6. TEGRETOL [Concomitant]

REACTIONS (5)
  - CONVULSION [None]
  - HYPERGLYCAEMIA [None]
  - HYPERTENSION [None]
  - MALAISE [None]
  - OVERDOSE [None]
